FAERS Safety Report 6178416-5 (Version None)
Quarter: 2009Q2

REPORT INFORMATION
  Report Type: 
  Country: None (occurrence: None)
  Receive Date: 20090504
  Receipt Date: 20090423
  Transmission Date: 20091009
  Serious: Yes (Hospitalization)
  Sender: FDA-Public Use
  Company Number: BG-AMGEN-UK341809

PATIENT
  Sex: Male

DRUGS (5)
  1. PANITUMUMAB [Suspect]
     Indication: NEOPLASM MALIGNANT
     Route: 042
     Dates: start: 20090305, end: 20090415
  2. CISPLATIN [Suspect]
     Route: 042
     Dates: start: 20090305
  3. FLUOROURACIL [Suspect]
     Route: 042
     Dates: start: 20090305
  4. MAGNESIUM SULFATE [Concomitant]
     Route: 048
     Dates: start: 20090216
  5. ANZEMET [Concomitant]
     Route: 042

REACTIONS (1)
  - RETINAL ARTERY OCCLUSION [None]
